FAERS Safety Report 9015242 (Version 1)
Quarter: 2013Q1

REPORT INFORMATION
  Report Type: Spontaneous
  Country: US (occurrence: None)
  Receive Date: 20130103
  Receipt Date: 20130103
  Transmission Date: 20140127
  Serious: Yes (Other)
  Sender: FDA-Public Use
  Company Number: 001444047A

PATIENT
  Sex: Female

DRUGS (4)
  1. BENZOYL PEROXIDE [Suspect]
     Indication: ACNE
     Dosage: DERMAL
     Dates: start: 20120920, end: 20121004
  2. PROACTIV REPAIRING TREATMENT [Suspect]
     Indication: ACNE
     Dosage: DERMAL
     Dates: start: 20120920, end: 20121004
  3. GUMMY VITAMINS [Concomitant]
  4. VITAMIN C WAFERS [Concomitant]

REACTIONS (2)
  - Dermatitis infected [None]
  - Stevens-Johnson syndrome [None]
